FAERS Safety Report 18230419 (Version 1)
Quarter: 2020Q3

REPORT INFORMATION
  Report Type: Spontaneous
  Country: CA (occurrence: CA)
  Receive Date: 20200904
  Receipt Date: 20200904
  Transmission Date: 20201103
  Serious: Yes (Death, Hospitalization)
  Sender: FDA-Public Use
  Company Number: CA-TEVA-2020-CA-1821651

PATIENT
  Age: 59 Year
  Sex: Female
  Weight: 88 kg

DRUGS (23)
  1. SPIRIVA [Concomitant]
     Active Substance: TIOTROPIUM BROMIDE MONOHYDRATE
     Route: 065
  2. AMITRIPTYLINE [Concomitant]
     Active Substance: AMITRIPTYLINE
  3. ELAVIL [Concomitant]
     Active Substance: AMITRIPTYLINE HYDROCHLORIDE
  4. RITUXIMAB. [Suspect]
     Active Substance: RITUXIMAB
     Indication: RHEUMATOID ARTHRITIS
     Route: 042
  5. LASIX [Concomitant]
     Active Substance: FUROSEMIDE
     Route: 065
  6. ROSUVASTATIN CALCIUM. [Concomitant]
     Active Substance: ROSUVASTATIN CALCIUM
  7. APO?LANSOPRAZOLE [Concomitant]
     Active Substance: LANSOPRAZOLE
  8. PREVACID [Concomitant]
     Active Substance: LANSOPRAZOLE
  9. RISEDRONATE SODIUM. [Concomitant]
     Active Substance: RISEDRONATE SODIUM
  10. APO METOPROLOL [Concomitant]
     Active Substance: METOPROLOL
  11. CLONAZEPAM. [Concomitant]
     Active Substance: CLONAZEPAM
  12. SALBUTAMOL [Concomitant]
     Active Substance: ALBUTEROL
  13. VENLAFAXINE HYDROCHLORIDE. [Concomitant]
     Active Substance: VENLAFAXINE HYDROCHLORIDE
  14. WELLBUTRIN [Concomitant]
     Active Substance: BUPROPION HYDROCHLORIDE
     Route: 065
  15. DIPHENHYDRAMINE HYDROCHLORIDE. [Concomitant]
     Active Substance: DIPHENHYDRAMINE HYDROCHLORIDE
     Route: 048
  16. HYDROCHLOROTHIAZIDE. [Concomitant]
     Active Substance: HYDROCHLOROTHIAZIDE
  17. OXYCOCET [Concomitant]
     Active Substance: ACETAMINOPHEN\OXYCODONE HYDROCHLORIDE
  18. PREDNISONE. [Concomitant]
     Active Substance: PREDNISONE
  19. MORPHINE [Suspect]
     Active Substance: MORPHINE
     Indication: PRODUCT USED FOR UNKNOWN INDICATION
     Route: 065
  20. ACTEMRA [Suspect]
     Active Substance: TOCILIZUMAB
     Indication: RHEUMATOID ARTHRITIS
     Route: 042
  21. ACETAMINOPHEN. [Concomitant]
     Active Substance: ACETAMINOPHEN
  22. DILTIAZEM. [Concomitant]
     Active Substance: DILTIAZEM
  23. METHYLPREDNISOLONE. [Concomitant]
     Active Substance: METHYLPREDNISOLONE
     Route: 042

REACTIONS (48)
  - Abdominal hernia [Fatal]
  - Cellulitis [Fatal]
  - Foot fracture [Fatal]
  - Musculoskeletal chest pain [Fatal]
  - Neoplasm malignant [Fatal]
  - Respiratory rate increased [Fatal]
  - Weight increased [Fatal]
  - Drug ineffective [Fatal]
  - Blood potassium decreased [Fatal]
  - Fall [Fatal]
  - Malaise [Fatal]
  - Mass [Fatal]
  - Abscess limb [Fatal]
  - Dysphagia [Fatal]
  - Headache [Fatal]
  - Heart rate increased [Fatal]
  - Hypotension [Fatal]
  - Lymphoedema [Fatal]
  - Pulmonary oedema [Fatal]
  - Wound [Fatal]
  - Arthralgia [Fatal]
  - Blood pressure diastolic decreased [Fatal]
  - Palpitations [Fatal]
  - Rib fracture [Fatal]
  - Skin laceration [Fatal]
  - Swelling [Fatal]
  - Hallucination [Fatal]
  - Head discomfort [Fatal]
  - Infection [Fatal]
  - Nasopharyngitis [Fatal]
  - Osteoporosis [Fatal]
  - Peripheral swelling [Fatal]
  - Skin infection [Fatal]
  - Spinal disorder [Fatal]
  - Spinal fracture [Fatal]
  - Upper limb fracture [Fatal]
  - Vomiting [Fatal]
  - Dyspnoea [Fatal]
  - Hernia [Fatal]
  - Lower respiratory tract infection [Fatal]
  - Oedema peripheral [Fatal]
  - Oxygen saturation decreased [Fatal]
  - Balance disorder [Fatal]
  - Cardiac failure congestive [Fatal]
  - Pain [Fatal]
  - Infusion related reaction [Fatal]
  - Pyrexia [Fatal]
  - Rash [Fatal]
